FAERS Safety Report 14815116 (Version 1)
Quarter: 2018Q2

REPORT INFORMATION
  Report Type: Spontaneous
  Country: JP (occurrence: JP)
  Receive Date: 20180426
  Receipt Date: 20180426
  Transmission Date: 20180711
  Serious: Yes (Hospitalization)
  Sender: FDA-Public Use
  Company Number: JP-JNJFOC-20180427026

PATIENT
  Sex: Female

DRUGS (1)
  1. SIMPONI [Suspect]
     Active Substance: GOLIMUMAB
     Indication: RHEUMATOID ARTHRITIS
     Route: 058

REACTIONS (7)
  - Surgery [Unknown]
  - Fatigue [Unknown]
  - Asthenia [Unknown]
  - Inflammation [Unknown]
  - Malaise [Unknown]
  - Decubitus ulcer [Unknown]
  - Swelling [Unknown]

NARRATIVE: CASE EVENT DATE: 201802
